FAERS Safety Report 13836070 (Version 1)
Quarter: 2017Q3

REPORT INFORMATION
  Report Type: Spontaneous
  Country: US (occurrence: US)
  Receive Date: 20170804
  Receipt Date: 20170804
  Transmission Date: 20171127
  Serious: No
  Sender: FDA-Public Use
  Company Number: US-PERRIGO-17US002196

PATIENT
  Age: 70 Year
  Sex: Female
  Weight: 63.49 kg

DRUGS (2)
  1. IBUPROFEN. [Suspect]
     Active Substance: IBUPROFEN
     Indication: ARTHRALGIA
     Dosage: 400 MG, PRN
     Route: 048
     Dates: start: 20170301
  2. TRAZODONE [Concomitant]
     Active Substance: TRAZODONE HYDROCHLORIDE
     Indication: INSOMNIA
     Dosage: UNK
     Route: 065

REACTIONS (2)
  - Nasal discharge discolouration [Unknown]
  - Chromaturia [Unknown]

NARRATIVE: CASE EVENT DATE: 20170301
